FAERS Safety Report 19584484 (Version 4)
Quarter: 2021Q4

REPORT INFORMATION
  Report Type: Report from Study
  Country: US (occurrence: US)
  Receive Date: 20210720
  Receipt Date: 20211008
  Transmission Date: 20220303
  Serious: Yes (Other)
  Sender: FDA-Public Use
  Company Number: NVSC2021US155102

PATIENT
  Age: 38 Year
  Sex: Female

DRUGS (2)
  1. COSENTYX [Suspect]
     Active Substance: SECUKINUMAB
     Indication: Psoriasis
     Dosage: 300 MG, QMO
     Route: 065
  2. COSENTYX [Suspect]
     Active Substance: SECUKINUMAB
     Indication: Psoriasis
     Dosage: 300 MG, QMO
     Route: 058

REACTIONS (14)
  - Behcet^s syndrome [Unknown]
  - Folliculitis [Unknown]
  - Oropharyngeal pain [Unknown]
  - Oral candidiasis [Unknown]
  - Pain in extremity [Unknown]
  - Pharyngeal ulceration [Unknown]
  - Vaginal ulceration [Unknown]
  - Dysuria [Unknown]
  - Fatigue [Unknown]
  - Speech disorder [Unknown]
  - Weight decreased [Unknown]
  - Fungal infection [Unknown]
  - Feeling abnormal [Unknown]
  - Drug hypersensitivity [Unknown]

NARRATIVE: CASE EVENT DATE: 20210704
